FAERS Safety Report 11720256 (Version 1)
Quarter: 2015Q4

REPORT INFORMATION
  Report Type: Spontaneous
  Country: JP (occurrence: JP)
  Receive Date: 20151110
  Receipt Date: 20151110
  Transmission Date: 20160304
  Serious: Yes (Death, Hospitalization, Other)
  Sender: FDA-Public Use
  Company Number: JP-FERRINGPH-2015FE00890

PATIENT

DRUGS (8)
  1. GONAX [Suspect]
     Active Substance: DEGARELIX
     Dosage: 240 MG, ONCE/SINGLE
     Route: 058
     Dates: start: 20130523
  2. DOCETAXEL. [Suspect]
     Active Substance: DOCETAXEL
     Indication: HORMONE-REFRACTORY PROSTATE CANCER
     Dosage: 95 MG, 1 TIME DAILY
     Route: 041
     Dates: start: 201305
  3. RANMARK [Concomitant]
     Active Substance: DENOSUMAB
  4. GASTER [Concomitant]
     Active Substance: FAMOTIDINE
  5. GONAX [Suspect]
     Active Substance: DEGARELIX
     Indication: HORMONE-REFRACTORY PROSTATE CANCER
     Dosage: 80 MG, MONTHLY
     Route: 058
     Dates: start: 201306, end: 20150226
  6. ONEALFA [Concomitant]
     Active Substance: ALFACALCIDOL
     Route: 048
  7. LASIX [Concomitant]
     Active Substance: FUROSEMIDE
  8. DEXAMETHASONE. [Suspect]
     Active Substance: DEXAMETHASONE
     Indication: HORMONE-REFRACTORY PROSTATE CANCER
     Dosage: 1 MG, 1 TIME DAILY
     Route: 048
     Dates: start: 2013

REACTIONS (7)
  - Pyrexia [Recovered/Resolved]
  - Off label use [Unknown]
  - Sudden death [None]
  - Injection site necrosis [Fatal]
  - Immunodeficiency [None]
  - Injection site cellulitis [Fatal]
  - Streptococcal infection [Unknown]

NARRATIVE: CASE EVENT DATE: 20130523
